FAERS Safety Report 5078593-3 (Version None)
Quarter: 2006Q3

REPORT INFORMATION
  Report Type: 
  Country: None (occurrence: None)
  Receive Date: 20060809
  Receipt Date: 20060809
  Transmission Date: 20061208
  Serious: Yes (Hospitalization)
  Sender: FDA-Public Use
  Company Number: None

PATIENT
  Sex: Male

DRUGS (2)
  1. IOHEXOL [Suspect]
     Indication: CATHETERISATION CARDIAC
     Dosage: ONCE
     Dates: start: 20050926, end: 20050926
  2. IOHEXOL [Suspect]
     Indication: SCAN WITH CONTRAST
     Dosage: ONCE
     Dates: start: 20050926, end: 20050926

REACTIONS (3)
  - CORONARY OSTIAL STENOSIS [None]
  - NEPHROPATHY TOXIC [None]
  - RENAL FAILURE ACUTE [None]
